FAERS Safety Report 4487088-7 (Version None)
Quarter: 2004Q4

REPORT INFORMATION
  Report Type: 
  Country: None (occurrence: None)
  Receive Date: 20041027
  Receipt Date: 20040601
  Transmission Date: 20050328
  Serious: Yes (Hospitalization, Disabling)
  Sender: FDA-Public Use
  Company Number: GB-GLAXOSMITHKLINE-B0334395A

PATIENT
  Age: 46 Year
  Sex: Female
  Weight: 59 kg

DRUGS (2)
  1. ZYBAN [Suspect]
     Route: 048
     Dates: start: 20030414, end: 20030501
  2. DESLORATADINE [Concomitant]
     Route: 065

REACTIONS (6)
  - CHOKING [None]
  - CONFUSIONAL STATE [None]
  - CONVULSION [None]
  - HEADACHE [None]
  - THERAPY NON-RESPONDER [None]
  - TONGUE BITING [None]
